FAERS Safety Report 8042447-0 (Version None)
Quarter: 2011Q4

REPORT INFORMATION
  Report Type: 
  Country: None (occurrence: None)
  Receive Date: 20111209
  Receipt Date: 20111110
  Transmission Date: 20120403
  Serious: Yes (Death)
  Sender: FDA-Public Use
  Company Number: 2011SP053024

PATIENT
  Age: 58 Year
  Sex: Male

DRUGS (4)
  1. VICTRELIS [Suspect]
     Indication: PRODUCT USED FOR UNKNOWN INDICATION
     Dosage: 800 MG; TID
     Dates: start: 20110901
  2. RIBAVIRIN [Suspect]
     Indication: PRODUCT USED FOR UNKNOWN INDICATION
     Dates: start: 20110801
  3. DIAVAN [Concomitant]
  4. NEXIUM [Concomitant]

REACTIONS (1)
  - RASH GENERALISED [None]
